FAERS Safety Report 13738878 (Version 6)
Quarter: 2018Q2

REPORT INFORMATION
  Report Type: Report from Study
  Country: US (occurrence: US)
  Receive Date: 20170710
  Receipt Date: 20180502
  Transmission Date: 20180711
  Serious: Yes (Other)
  Sender: FDA-Public Use
  Company Number: US-SAOL THERAPEUTICS-2017SAO00061

PATIENT
  Age: 61 Year
  Sex: Female
  Weight: 50.34 kg

DRUGS (36)
  1. COMPOUNDED BACLOFEN [Suspect]
     Active Substance: BACLOFEN
     Dosage: UNK
  2. DILAUDID [Suspect]
     Active Substance: HYDROMORPHONE HYDROCHLORIDE
     Dosage: 1.7488 MG, \DAY
     Route: 037
     Dates: start: 20150924
  3. DILAUDID [Suspect]
     Active Substance: HYDROMORPHONE HYDROCHLORIDE
     Dosage: 1.4015 MG, \DAY
     Route: 037
     Dates: start: 20170216
  4. DILAUDID [Suspect]
     Active Substance: HYDROMORPHONE HYDROCHLORIDE
     Dosage: 2.1808 MG, \DAY - MAX
     Dates: start: 20170727
  5. DILAUDID [Suspect]
     Active Substance: HYDROMORPHONE HYDROCHLORIDE
     Dosage: 2.1808 MG, \DAY - MAX
     Dates: start: 20171018
  6. BUPIVACAINE. [Suspect]
     Active Substance: BUPIVACAINE
     Dosage: 17.488 MG, \DAY
     Route: 037
     Dates: start: 20150924
  7. COMPOUNDED BACLOFEN [Suspect]
     Active Substance: BACLOFEN
     Dosage: 467.2 ?G, \DAY
     Route: 037
     Dates: start: 20170216
  8. COMPOUNDED BACLOFEN [Suspect]
     Active Substance: BACLOFEN
     Dosage: 710.4 ?G \DAY- MAX
     Route: 037
     Dates: start: 20170531, end: 20170727
  9. COMPOUNDED BACLOFEN [Suspect]
     Active Substance: BACLOFEN
     Dosage: UNK
  10. DILAUDID [Suspect]
     Active Substance: HYDROMORPHONE HYDROCHLORIDE
     Dosage: 0.902 MG, \DAY
     Route: 037
     Dates: start: 20140529
  11. DILAUDID [Suspect]
     Active Substance: HYDROMORPHONE HYDROCHLORIDE
     Dosage: 1.4000 MG, \DAY
     Route: 037
     Dates: start: 20170531
  12. BUPIVACAINE. [Suspect]
     Active Substance: BUPIVACAINE
     Dosage: 14.000 MG, \DAY
     Dates: start: 20171018
  13. URECHOLINE [Concomitant]
     Active Substance: BETHANECHOL CHLORIDE
  14. COMPOUNDED BACLOFEN [Suspect]
     Active Substance: BACLOFEN
     Indication: PAIN
     Dosage: 187.49 ?G, \DAY
     Route: 037
     Dates: end: 20140529
  15. DILAUDID [Suspect]
     Active Substance: HYDROMORPHONE HYDROCHLORIDE
     Dosage: 0.75 MG, \DAY
     Route: 037
     Dates: end: 20140529
  16. DILAUDID [Suspect]
     Active Substance: HYDROMORPHONE HYDROCHLORIDE
     Dosage: 1.2494 MG, \DAY
     Route: 037
     Dates: start: 20150924
  17. DILAUDID [Suspect]
     Active Substance: HYDROMORPHONE HYDROCHLORIDE
     Dosage: 2.1311 MG/DAY - MAX
     Route: 037
     Dates: start: 20170531, end: 20170727
  18. BUPIVACAINE. [Suspect]
     Active Substance: BUPIVACAINE
     Dosage: 21.320 MG, \DAY
     Route: 037
     Dates: start: 20170216
  19. BUPIVACAINE. [Suspect]
     Active Substance: BUPIVACAINE
     Dosage: 21.808 MG, \DAY- MAX
     Dates: start: 20171018
  20. COMPOUNDED BACLOFEN [Suspect]
     Active Substance: BACLOFEN
     Indication: PAIN
     Dosage: 416.5 ?G, \DAY
     Route: 037
     Dates: start: 20150924
  21. COMPOUNDED BACLOFEN [Suspect]
     Active Substance: BACLOFEN
     Dosage: 726.9 ?G, \DAY- MAX
     Dates: start: 20171018
  22. BUPIVACAINE. [Suspect]
     Active Substance: BUPIVACAINE
     Dosage: 11.249 MG, \DAY
     Route: 037
     Dates: end: 20140529
  23. BUPIVACAINE. [Suspect]
     Active Substance: BUPIVACAINE
     Dosage: 14.015 MG, \DAY
     Route: 037
     Dates: start: 20170216
  24. BUPIVACAINE. [Suspect]
     Active Substance: BUPIVACAINE
     Dosage: 14.000 MG, \DAY
     Route: 037
     Dates: start: 20170531
  25. BUPIVACAINE. [Suspect]
     Active Substance: BUPIVACAINE
     Dosage: 21.311 MG, \DAY - MAX
     Route: 037
     Dates: start: 20170531, end: 20170727
  26. COMPOUNDED BACLOFEN [Suspect]
     Active Substance: BACLOFEN
     Dosage: 582.9 ?G, \DAY
     Route: 037
     Dates: start: 20150924
  27. COMPOUNDED BACLOFEN [Suspect]
     Active Substance: BACLOFEN
     Dosage: 466.7 ?G, \DAY
     Route: 037
     Dates: start: 20170531
  28. DILAUDID [Suspect]
     Active Substance: HYDROMORPHONE HYDROCHLORIDE
     Dosage: 1.40000 MG, \DAY
     Dates: start: 20171018
  29. COMPOUNDED BACLOFEN [Suspect]
     Active Substance: BACLOFEN
     Dosage: 466.7 ?G, \DAY
     Dates: start: 20171018
  30. BUPIVACAINE. [Suspect]
     Active Substance: BUPIVACAINE
     Dosage: 21.808 MG, \DAY- MAX
     Dates: start: 20170727
  31. COMPOUNDED BACLOFEN [Suspect]
     Active Substance: BACLOFEN
     Dosage: 726.9 ?G, \DAY - MAX
     Route: 037
     Dates: start: 20170727
  32. BUPIVACAINE. [Suspect]
     Active Substance: BUPIVACAINE
     Dosage: 12.494 MG, \DAY
     Route: 037
     Dates: start: 20150924
  33. COMPOUNDED BACLOFEN [Suspect]
     Active Substance: BACLOFEN
     Dosage: 225.5 ?G, \DAY
     Route: 037
     Dates: start: 20140529
  34. COMPOUNDED BACLOFEN [Suspect]
     Active Substance: BACLOFEN
     Dosage: 710.7 ?G, \DAY
     Route: 037
     Dates: start: 20170216
  35. DILAUDID [Suspect]
     Active Substance: HYDROMORPHONE HYDROCHLORIDE
     Dosage: 2.132 MG, \DAY
     Route: 037
     Dates: start: 20170216
  36. BUPIVACAINE. [Suspect]
     Active Substance: BUPIVACAINE
     Dosage: 13.53 MG, \DAY
     Route: 037
     Dates: start: 20140529

REACTIONS (5)
  - Catheter site erythema [Recovered/Resolved]
  - Urinary retention [Recovered/Resolved]
  - Implant site dehiscence [Recovered/Resolved]
  - Off label use [Unknown]
  - Implant site pain [Recovered/Resolved]

NARRATIVE: CASE EVENT DATE: 20151124
